FAERS Safety Report 17426567 (Version 1)
Quarter: 2020Q1

REPORT INFORMATION
  Report Type: Spontaneous
  Country: CA (occurrence: CA)
  Receive Date: 20200218
  Receipt Date: 20200218
  Transmission Date: 20200409
  Serious: Yes (Other)
  Sender: FDA-Public Use
  Company Number: CA-ALKEM LABORATORIES LIMITED-CA-ALKEM-2019-06005

PATIENT
  Age: 34 Year
  Sex: Female

DRUGS (8)
  1. DOXYCYCLINE. [Concomitant]
     Active Substance: DOXYCYCLINE
     Indication: ANTIBIOTIC THERAPY
     Dosage: 100 MILLIGRAM, BID
     Route: 048
  2. LINEZOLID. [Suspect]
     Active Substance: LINEZOLID
     Indication: KERATITIS BACTERIAL
     Dosage: 0.2%
     Route: 065
  3. LINEZOLID. [Suspect]
     Active Substance: LINEZOLID
     Indication: MYCOBACTERIUM ABSCESSUS INFECTION
  4. TRIMETHOPRIM-POLYMYXIN B [Concomitant]
     Indication: ANTIBIOTIC THERAPY
     Dosage: (1 MG/10000 UNITS)/ML
     Route: 065
  5. AZITHROMYCIN ANHYDROUS. [Concomitant]
     Active Substance: AZITHROMYCIN ANHYDROUS
     Indication: ANTIBIOTIC THERAPY
     Dosage: 1% IN THE LEFT EYE
     Route: 065
  6. GATIFLOXACIN. [Concomitant]
     Active Substance: GATIFLOXACIN
     Indication: ANTIBIOTIC THERAPY
     Dosage: UNK
     Route: 065
  7. AMIKACIN. [Suspect]
     Active Substance: AMIKACIN
     Indication: KERATITIS BACTERIAL
     Dosage: 50 MG/ML
  8. AMIKACIN. [Suspect]
     Active Substance: AMIKACIN
     Indication: MYCOBACTERIUM ABSCESSUS INFECTION

REACTIONS (1)
  - Therapy non-responder [Unknown]
